APPROVED DRUG PRODUCT: PHERAZINE VC W/ CODEINE
Active Ingredient: CODEINE PHOSPHATE; PHENYLEPHRINE HYDROCHLORIDE; PROMETHAZINE HYDROCHLORIDE
Strength: 10MG/5ML;5MG/5ML;6.25MG/5ML
Dosage Form/Route: SYRUP;ORAL
Application: A088870 | Product #001
Applicant: HALSEY DRUG CO INC
Approved: Mar 2, 1987 | RLD: No | RS: No | Type: DISCN